FAERS Safety Report 10435820 (Version 2)
Quarter: 2014Q3

REPORT INFORMATION
  Report Type: Spontaneous
  Country: US (occurrence: US)
  Receive Date: 20140908
  Receipt Date: 20140908
  Transmission Date: 20150326
  Serious: Yes (Other)
  Sender: FDA-Public Use
  Company Number: US-AMGEN-USASP2014063186

PATIENT
  Age: 74 Year
  Sex: Male
  Weight: 51.5 kg

DRUGS (1)
  1. SENSIPAR [Suspect]
     Active Substance: CINACALCET HYDROCHLORIDE
     Indication: PRODUCT USED FOR UNKNOWN INDICATION
     Dosage: 30 MG, QD
     Route: 048
     Dates: start: 201304, end: 20140808

REACTIONS (7)
  - Angioedema [Unknown]
  - Rash [Unknown]
  - Dermatitis bullous [Recovering/Resolving]
  - Hypertension [Unknown]
  - Renal failure chronic [Unknown]
  - Arteriosclerosis [Unknown]
  - Pain [Unknown]

NARRATIVE: CASE EVENT DATE: 201408
